FAERS Safety Report 5276594-3 (Version None)
Quarter: 2007Q1

REPORT INFORMATION
  Report Type: 
  Country: None (occurrence: None)
  Receive Date: 20070327
  Receipt Date: 20070315
  Transmission Date: 20070707
  Serious: Yes (Other)
  Sender: FDA-Public Use
  Company Number: US-ELI_LILLY_AND_COMPANY-US200602002232

PATIENT
  Age: 41 Year
  Sex: Female
  Weight: 111.11 kg

DRUGS (13)
  1. ZYPREXA [Suspect]
     Indication: DEPRESSION
     Dosage: 100 MG, UNK
     Dates: start: 20010502, end: 20050101
  2. FUROSEMIDE [Concomitant]
  3. TIAZAC [Concomitant]
  4. ZOLOFT [Concomitant]
  5. CLONAZEPAM [Concomitant]
  6. BENZTROPINE MESYLATE [Concomitant]
  7. SEROQUEL [Concomitant]
  8. AMBIEN [Concomitant]
  9. VALPROIC ACID [Concomitant]
  10. ISOSORBIDE [Concomitant]
  11. NORVASC [Concomitant]
  12. GEODON [Concomitant]
  13. TOPROL-XL [Concomitant]

REACTIONS (13)
  - ARTHRALGIA [None]
  - ASTHENIA [None]
  - BLOOD GLUCOSE FLUCTUATION [None]
  - DENTAL CARIES [None]
  - DEPRESSED LEVEL OF CONSCIOUSNESS [None]
  - DIABETES MELLITUS NON-INSULIN-DEPENDENT [None]
  - DIABETIC FOOT [None]
  - HYPOAESTHESIA [None]
  - PAIN IN EXTREMITY [None]
  - PANCREATIC DISORDER [None]
  - PRESCRIBED OVERDOSE [None]
  - PRESYNCOPE [None]
  - WEIGHT INCREASED [None]
